FAERS Safety Report 10301383 (Version 2)
Quarter: 2014Q3

REPORT INFORMATION
  Report Type: Spontaneous
  Country: NL (occurrence: None)
  Receive Date: 20140708
  Receipt Date: 20140815
  Transmission Date: 20150326
  Serious: Yes (Hospitalization)
  Sender: FDA-Public Use
  Company Number: 2419302

PATIENT
  Age: 45 Year
  Sex: Female

DRUGS (4)
  1. EPIRUBICIN HYDROCHLORIDE. [Suspect]
     Active Substance: EPIRUBICIN HYDROCHLORIDE
     Indication: INVASIVE DUCTAL BREAST CARCINOMA
     Dosage: NOT REPORTED, UNKNOWN, UNKNOWN
  2. CYCLOPHOSPHAMIDE. [Suspect]
     Active Substance: CYCLOPHOSPHAMIDE
     Indication: INVASIVE DUCTAL BREAST CARCINOMA
     Dosage: NOT REPORTED, UNKNOWN, UNKNOWN
  3. THERAPEUTIC RADIOPHARMACEUTICALS [Suspect]
     Active Substance: RADIATION THERAPY
     Indication: INVASIVE DUCTAL BREAST CARCINOMA
     Dosage: NOT REPORTED, UNKNOWN, UNKNOWN?
  4. FLUOROURACIL. [Suspect]
     Active Substance: FLUOROURACIL
     Indication: INVASIVE DUCTAL BREAST CARCINOMA
     Dosage: NOT REPORTED, UNKNOWN, UNKNOWN

REACTIONS (2)
  - Coronary artery thrombosis [None]
  - Acute coronary syndrome [None]
